FAERS Safety Report 24082250 (Version 3)
Quarter: 2024Q3

REPORT INFORMATION
  Report Type: Spontaneous
  Country: DE (occurrence: DE)
  Receive Date: 20240712
  Receipt Date: 20240821
  Transmission Date: 20241017
  Serious: Yes (Hospitalization, Other)
  Sender: AUROBINDO
  Company Number: DE-HIKMA PHARMACEUTICALS-DE-H14001-24-04741

PATIENT
  Age: 28 Year
  Sex: Female
  Weight: 108 kg

DRUGS (8)
  1. LIDOCAINE [Suspect]
     Active Substance: LIDOCAINE
     Indication: Anaesthesia
     Dosage: UNKNOWN
     Route: 065
  2. CAFEDRINE HYDROCHLORIDE\THEODRENALINE [Suspect]
     Active Substance: CAFEDRINE HYDROCHLORIDE\THEODRENALINE
     Indication: Blood pressure management
     Dosage: 1-2 ML OF DILUTED SOLUTION
     Route: 065
  3. PROPOFOL [Suspect]
     Active Substance: PROPOFOL
     Indication: General anaesthesia
     Dosage: 200 MILLIGRAM
     Route: 065
  4. PROPOFOL [Suspect]
     Active Substance: PROPOFOL
     Dosage: 6 MG/KG/H
     Route: 065
  5. PROPOFOL [Suspect]
     Active Substance: PROPOFOL
     Dosage: 3 MG/KG/H
     Route: 065
  6. CLINDAMYCIN [Suspect]
     Active Substance: CLINDAMYCIN
     Indication: Perioperative analgesia
     Dosage: 600 MILLIGRAM
     Route: 042
     Dates: start: 20240503
  7. ROCURONIUM BROMIDE [Suspect]
     Active Substance: ROCURONIUM BROMIDE
     Indication: General anaesthesia
     Dosage: 50 MILLIGRAM
     Route: 065
  8. SUFENTANIL CITRATE [Suspect]
     Active Substance: SUFENTANIL CITRATE
     Indication: General anaesthesia
     Dosage: 30 MICROGRAM
     Route: 065

REACTIONS (14)
  - Dyspnoea exertional [Unknown]
  - Bronchospasm [Unknown]
  - Anaphylactic reaction [Unknown]
  - Cardiovascular disorder [Unknown]
  - Flushing [Unknown]
  - Swelling face [Unknown]
  - Angioedema [Unknown]
  - Face oedema [Unknown]
  - Blood pressure decreased [Recovered/Resolved]
  - Tryptase decreased [Unknown]
  - Metabolic acidosis [Unknown]
  - Erythema [Unknown]
  - Dry skin [Unknown]
  - Off label use [Unknown]

NARRATIVE: CASE EVENT DATE: 20240503
